FAERS Safety Report 5240459-3 (Version None)
Quarter: 2007Q1

REPORT INFORMATION
  Report Type: 
  Country: None (occurrence: None)
  Receive Date: 20061208
  Receipt Date: 20050413
  Transmission Date: 20070707
  Serious: Yes (Other)
  Sender: FDA-Public Use
  Company Number: 2005UW05746

PATIENT
  Age: 55 Year
  Sex: Female
  Weight: 63.502 kg

DRUGS (3)
  1. CRESTOR [Suspect]
     Indication: BLOOD CHOLESTEROL INCREASED
     Dosage: 10 MG QD PO
     Route: 048
     Dates: start: 20041001
  2. ZOLOFT [Concomitant]
  3. HORMONE REPLACEMENT THERAPY [Concomitant]

REACTIONS (4)
  - COUGH [None]
  - FATIGUE [None]
  - MALAISE [None]
  - MUSCLE ATROPHY [None]
